FAERS Safety Report 16323645 (Version 1)
Quarter: 2019Q2

REPORT INFORMATION
  Report Type: Spontaneous
  Country: FR (occurrence: FR)
  Receive Date: 20190517
  Receipt Date: 20190517
  Transmission Date: 20190711
  Serious: Yes (Other)
  Sender: FDA-Public Use
  Company Number: FR-BIOVITRUM-2019FR1064

PATIENT
  Age: 53 Year
  Sex: Female

DRUGS (2)
  1. KINERET [Suspect]
     Active Substance: ANAKINRA
     Indication: CRYOPYRIN ASSOCIATED PERIODIC SYNDROME
     Route: 058
     Dates: start: 20190401
  2. CORTANCYL [Suspect]
     Active Substance: PREDNISONE
     Indication: CRYOPYRIN ASSOCIATED PERIODIC SYNDROME
     Route: 048

REACTIONS (1)
  - Hypertension [Recovered/Resolved]

NARRATIVE: CASE EVENT DATE: 201904
